FAERS Safety Report 8191176-1 (Version None)
Quarter: 2012Q1

REPORT INFORMATION
  Report Type: 
  Country: None (occurrence: None)
  Receive Date: 20120221
  Receipt Date: 20111116
  Transmission Date: 20120608
  Serious: No
  Sender: FDA-Public Use
  Company Number: 1000025562

PATIENT
  Age: 69 Year
  Sex: Female

DRUGS (8)
  1. VYVANSE (LISDEXAMFETAMINE MESILATE) (LISDEXAMFETAMINE MESILATE) [Concomitant]
  2. VIIBRYD [Suspect]
     Indication: ANXIETY
     Dosage: 40 MG (40 MG, 1 IN 1 D), ORAL
     Route: 048
     Dates: start: 20111001, end: 20110101
  3. VIIBRYD [Suspect]
     Indication: ANXIETY
     Dosage: 40 MG (40 MG, 1 IN 1 D), ORAL
     Route: 048
     Dates: start: 20110101, end: 20111001
  4. VIIBRYD [Suspect]
     Indication: ANXIETY
     Dosage: 10 MG (10 MG, 1 IN 1 D), ORAL
     Route: 048
     Dates: start: 20110101, end: 20111114
  5. VIIBRYD [Suspect]
     Indication: ANXIETY
     Dosage: 10 MG (10 MG, 1 IN 1 D), ORAL 20 MG (20 MG, 1 IN 1 D), ORAL
     Route: 048
     Dates: start: 20110101, end: 20110101
  6. VIIBRYD [Suspect]
     Indication: ANXIETY
     Dosage: 10 MG (10 MG, 1 IN 1 D), ORAL 20 MG (20 MG, 1 IN 1 D), ORAL
     Route: 048
     Dates: start: 20110701, end: 20110101
  7. CENESTIN (ESTROGENS CONJUGATED) (ESTROGENS CONJUGATED) [Concomitant]
  8. BENICAR [Concomitant]

REACTIONS (10)
  - NAUSEA [None]
  - DISTURBANCE IN ATTENTION [None]
  - INSOMNIA [None]
  - DRY MOUTH [None]
  - HEAD DISCOMFORT [None]
  - NIGHTMARE [None]
  - ANGER [None]
  - DIARRHOEA [None]
  - HEADACHE [None]
  - OFF LABEL USE [None]
